FAERS Safety Report 6652960-6 (Version None)
Quarter: 2010Q1

REPORT INFORMATION
  Report Type: 
  Country: None (occurrence: None)
  Receive Date: 20100326
  Receipt Date: 20100315
  Transmission Date: 20100710
  Serious: Yes (Hospitalization)
  Sender: FDA-Public Use
  Company Number: PHHY2009JP36745

PATIENT
  Sex: Male

DRUGS (17)
  1. TASIGNA [Suspect]
     Indication: CHRONIC MYELOID LEUKAEMIA
     Dosage: 800 MG/DAY
     Route: 048
     Dates: start: 20090728, end: 20090802
  2. FENTANYL CITRATE [Concomitant]
     Route: 061
  3. METHYCOBAL [Concomitant]
     Dosage: 1500 UG, UNK
     Route: 048
     Dates: start: 20091225
  4. NIPOLAZIN [Concomitant]
     Dosage: 6 MG, UNK
     Route: 048
     Dates: start: 20091225
  5. ALOSITOL [Concomitant]
     Dosage: 200 MG, UNK
     Route: 048
     Dates: start: 20091225
  6. BIO THREE [Concomitant]
     Dosage: 3 DF, UNK
     Route: 048
     Dates: start: 20091225
  7. KINEDAK [Concomitant]
     Dosage: 150 MG, UNK
     Route: 048
     Dates: start: 20091225
  8. AMARYL [Concomitant]
     Dosage: UNK
     Route: 048
     Dates: start: 20091225
  9. BASEN [Concomitant]
     Dosage: 3 DF, UNK
     Route: 048
     Dates: start: 20091225
  10. NEUROTROPIN [Concomitant]
     Dosage: 4 DF, UNK
     Route: 048
     Dates: start: 20091225
  11. MUCOSTA [Concomitant]
     Dosage: 300 MG, UNK
     Route: 048
     Dates: start: 20091225
  12. LENDORMIN [Concomitant]
     Dosage: 0.25 MG, UNK
     Route: 048
     Dates: start: 20091225
  13. OMEPRAL [Concomitant]
     Dosage: UNK
     Route: 048
     Dates: start: 20091225
  14. HERBAL EXTRACTS NOS [Concomitant]
     Dosage: 15 G, UNK
     Dates: start: 20091225
  15. SPRYCEL [Concomitant]
     Indication: CHRONIC MYELOID LEUKAEMIA
     Dosage: 100 MG, UNK
     Route: 048
     Dates: start: 20090401
  16. SPRYCEL [Concomitant]
     Dosage: 100 MG, UNK
     Route: 048
     Dates: start: 20090514
  17. HYDREA [Concomitant]
     Indication: CHRONIC MYELOID LEUKAEMIA
     Dosage: UNK
     Route: 048
     Dates: start: 20090630, end: 20090929

REACTIONS (3)
  - ARTHRALGIA [None]
  - HEADACHE [None]
  - MALAISE [None]
